FAERS Safety Report 5150200-0 (Version None)
Quarter: 2006Q4

REPORT INFORMATION
  Report Type: 
  Country: None (occurrence: None)
  Receive Date: 20061109
  Receipt Date: 20061109
  Transmission Date: 20070319
  Serious: Yes (Life-Threatening, Hospitalization)
  Sender: FDA-Public Use
  Company Number: None

PATIENT
  Sex: Female
  Weight: 76.6579 kg

DRUGS (3)
  1. VALTREX [Suspect]
     Indication: HERPES ZOSTER OPHTHALMIC
     Dosage: 1 GRAM BID ORAL
     Route: 048
     Dates: start: 20060708, end: 20060716
  2. HYDROCHLOROTHIAZIDE [Concomitant]
  3. QUINAPRIL [Concomitant]

REACTIONS (1)
  - RENAL FAILURE ACUTE [None]
